FAERS Safety Report 9507152 (Version 1)
Quarter: 2013Q1

REPORT INFORMATION
  Report Type: Spontaneous
  Country: US (occurrence: None)
  Receive Date: 20130305
  Receipt Date: 20130305
  Transmission Date: 20140127
  Serious: No
  Sender: FDA-Public Use
  Company Number: 163-21880-12052674

PATIENT
  Age: 83 Year
  Sex: Female

DRUGS (1)
  1. REVLIMID (LENALIDOMIDE) (CAPSULES) [Suspect]
     Indication: PLASMA CELL MYELOMA
     Dosage: 10MG, 21 IN 28 D , PO
     Route: 048
     Dates: start: 20120511, end: 20120606

REACTIONS (6)
  - Full blood count decreased [None]
  - Fatigue [None]
  - Dizziness [None]
  - Nausea [None]
  - Headache [None]
  - Hyperhidrosis [None]
